FAERS Safety Report 10238455 (Version 2)
Quarter: 2015Q1

REPORT INFORMATION
  Report Type: Spontaneous
  Country: US (occurrence: US)
  Receive Date: 20140616
  Receipt Date: 20150313
  Transmission Date: 20150720
  Serious: Yes (Hospitalization, Other)
  Sender: FDA-Public Use
  Company Number: US-SA-2014SA075557

PATIENT
  Age: 54 Year

DRUGS (3)
  1. PLAVIX [Suspect]
     Active Substance: CLOPIDOGREL BISULFATE
     Indication: PROPHYLAXIS
     Route: 048
     Dates: start: 20080520, end: 20110615
  2. ASPIRIN. [Concomitant]
     Active Substance: ASPIRIN
  3. ASPIRIN. [Concomitant]
     Active Substance: ASPIRIN

REACTIONS (2)
  - Gastrointestinal haemorrhage [Recovered/Resolved]
  - Multiple injuries [Not Recovered/Not Resolved]

NARRATIVE: CASE EVENT DATE: 20110615
